FAERS Safety Report 6753502-7 (Version None)
Quarter: 2010Q2

REPORT INFORMATION
  Report Type: 
  Country: None (occurrence: None)
  Receive Date: 20100603
  Receipt Date: 20100503
  Transmission Date: 20101027
  Serious: No
  Sender: FDA-Public Use
  Company Number: US-BAYER-201015134BCC

PATIENT
  Age: 54 Year
  Sex: Female

DRUGS (5)
  1. FINACEA [Suspect]
     Indication: ROSACEA
     Route: 061
     Dates: start: 20100408, end: 20100413
  2. FINACEA [Suspect]
     Route: 061
     Dates: start: 20100501
  3. CORTISONE SHOT [Suspect]
     Indication: INTERVERTEBRAL DISC PROTRUSION
     Route: 065
     Dates: start: 20100101, end: 20100413
  4. VITAMIN D AND CALCIUM [Suspect]
     Indication: DRUG USE FOR UNKNOWN INDICATION
     Route: 065
     Dates: start: 20100101, end: 20100413
  5. ANTIOXIDANT MOISTURIZER [Suspect]
     Indication: DRUG USE FOR UNKNOWN INDICATION
     Route: 065
     Dates: start: 20100410, end: 20100413

REACTIONS (1)
  - RASH [None]
